FAERS Safety Report 19180349 (Version 3)
Quarter: 2021Q2

REPORT INFORMATION
  Report Type: Spontaneous
  Country: US (occurrence: US)
  Receive Date: 20210426
  Receipt Date: 20210505
  Transmission Date: 20210717
  Serious: Yes (Life-Threatening, Other)
  Sender: FDA-Public Use
  Company Number: US-PFIZER INC-2021427776

PATIENT
  Sex: Female

DRUGS (2)
  1. EPINEPHRINE. [Suspect]
     Active Substance: EPINEPHRINE
     Indication: ANAPHYLACTIC REACTION
     Dosage: 1 OR 2 SHOTS (UNSURE HOW MANY)
     Dates: start: 20210327
  2. EPINEPHRINE. [Suspect]
     Active Substance: EPINEPHRINE
     Dosage: 1 OR 2 SHOTS (RECEIVED SOME MORE AT HOSPITAL)
     Dates: start: 20210331

REACTIONS (1)
  - Drug ineffective [Unknown]

NARRATIVE: CASE EVENT DATE: 2021
